FAERS Safety Report 15753416 (Version 1)
Quarter: 2018Q4

REPORT INFORMATION
  Report Type: Spontaneous
  Country: US (occurrence: US)
  Receive Date: 20181222
  Receipt Date: 20181222
  Transmission Date: 20190205
  Serious: No
  Sender: FDA-Public Use
  Company Number: US-MALLINCKRODT-T201801294

PATIENT
  Sex: Female

DRUGS (1)
  1. FENTANYL TRANSDERMAL SYSTEM [Suspect]
     Active Substance: FENTANYL
     Indication: PAIN
     Dosage: 50 MCG, EVERY THREE DAYS
     Route: 062
     Dates: start: 201801

REACTIONS (4)
  - Erythema [Unknown]
  - Blister [Unknown]
  - Skin burning sensation [Unknown]
  - Pruritus [Unknown]
